FAERS Safety Report 6450740-8 (Version None)
Quarter: 2009Q4

REPORT INFORMATION
  Report Type: 
  Country: None (occurrence: None)
  Receive Date: 20091123
  Receipt Date: 20091117
  Transmission Date: 20100525
  Serious: Yes (Hospitalization, Other)
  Sender: FDA-Public Use
  Company Number: BR-ABBOTT-09P-020-0594568-00

PATIENT
  Sex: Female
  Weight: 45 kg

DRUGS (2)
  1. HUMIRA [Suspect]
     Indication: CROHN'S DISEASE
     Dosage: FORM STRENGTH:  40 MG
     Route: 058
     Dates: start: 20090601, end: 20090901
  2. AZATHIOPRINE [Concomitant]
     Indication: CROHN'S DISEASE
     Route: 048

REACTIONS (9)
  - DEHYDRATION [None]
  - DIARRHOEA [None]
  - DRUG INEFFECTIVE [None]
  - FISTULA [None]
  - MALNUTRITION [None]
  - SWELLING [None]
  - URINARY TRACT INFECTION [None]
  - WEIGHT DECREASED [None]
  - WOUND DEHISCENCE [None]
